FAERS Safety Report 9557985 (Version 1)
Quarter: 2013Q3

REPORT INFORMATION
  Report Type: Spontaneous
  Country: US (occurrence: None)
  Receive Date: 20130724
  Receipt Date: 20130724
  Transmission Date: 20140515
  Serious: Yes (Other)
  Sender: FDA-Public Use
  Company Number: PHEH2012US020321

PATIENT
  Age: 48 Year
  Sex: Female
  Weight: 122.4 kg

DRUGS (2)
  1. DIOVAN HCT [Suspect]
     Indication: HYPERTENSION
     Dosage: 320/12.5 , ORAL
     Route: 048
     Dates: end: 20120825
  2. PROPANOLOL ( PROPANOLOL) [Concomitant]

REACTIONS (1)
  - Blood pressure inadequately controlled [None]
